FAERS Safety Report 9994680 (Version 1)
Quarter: 2014Q1

REPORT INFORMATION
  Report Type: Spontaneous
  Country: US (occurrence: None)
  Receive Date: 20140306
  Receipt Date: 20140306
  Transmission Date: 20141002
  Serious: Yes (Death, Life-Threatening, Hospitalization)
  Sender: FDA-Public Use
  Company Number: KAD201402-000279

PATIENT
  Age: 62 Year
  Sex: Male
  Weight: 87.1 kg

DRUGS (17)
  1. RIBAVIRIN (RIBAVIRIN) [Suspect]
     Route: 048
     Dates: start: 20131211, end: 20140128
  2. SOF/LDV (SOFOSBUVIR, LEDIPASVIR) [Suspect]
     Route: 048
     Dates: start: 20131211
  3. MICROFUNGIN [Concomitant]
  4. LISINOPRIL/ HCTZ (LISINOPRIL, HYDROCHLOROTHIAZIDE) [Concomitant]
  5. OXYCODONE [Concomitant]
  6. ZOSYN (PIPERACILLIN SODIUM, TAZOBACTAM SODIUM) [Concomitant]
  7. ALBUMIN [Concomitant]
  8. ASPIRIN (ACETYLSALICYLIC ACID) [Concomitant]
  9. PACKED RED BLOOD CELLS (PACKED RED BLOOD CELLS) [Concomitant]
  10. SPIRONOLACTONE [Concomitant]
  11. FUROSEMIDE [Concomitant]
  12. MAGNESIUM HYDROXIDE [Concomitant]
  13. FRESH FROZEN PLASMA [Concomitant]
  14. MAGNESIUM OXIDE [Concomitant]
  15. METOPROLOL [Concomitant]
  16. RANITIDINE [Concomitant]
  17. TACROLIMUS [Concomitant]

REACTIONS (10)
  - Haemolytic anaemia [None]
  - Splenic vein thrombosis [None]
  - Liver abscess [None]
  - Sepsis [None]
  - Pleural effusion [None]
  - Hepatic necrosis [None]
  - Enterococcal infection [None]
  - Melaena [None]
  - Renal failure acute [None]
  - Duodenal ulcer [None]
